FAERS Safety Report 7585818-9 (Version None)
Quarter: 2011Q2

REPORT INFORMATION
  Report Type: 
  Country: None (occurrence: None)
  Receive Date: 20110603
  Receipt Date: 20110421
  Transmission Date: 20111010
  Serious: No
  Sender: FDA-Public Use
  Company Number: 201104025

PATIENT
  Age: 72 Year
  Sex: Female

DRUGS (4)
  1. ASPIRIN [Concomitant]
  2. LIDOCAINE AND EPINEPHRINE [Suspect]
  3. XIAFLEX [Suspect]
     Indication: DUPUYTREN'S CONTRACTURE
     Dosage: 0.58 MG, 1 IN 1 D, INTRALESIONAL, 1 IN 1 D, INTRALESIONAL
     Route: 026
     Dates: start: 20100719, end: 20100719
  4. XIAFLEX [Suspect]
     Indication: DUPUYTREN'S CONTRACTURE
     Dosage: 0.58 MG, 1 IN 1 D, INTRALESIONAL, 1 IN 1 D, INTRALESIONAL
     Route: 026
     Dates: start: 20101101, end: 20101101

REACTIONS (4)
  - INCORRECT DOSE ADMINISTERED [None]
  - LACERATION [None]
  - OEDEMA PERIPHERAL [None]
  - CONTUSION [None]
